FAERS Safety Report 9132754 (Version 1)
Quarter: 2013Q1

REPORT INFORMATION
  Report Type: Spontaneous
  Country: FR (occurrence: FR)
  Receive Date: 20130301
  Receipt Date: 20130301
  Transmission Date: 20140127
  Serious: Yes (Hospitalization)
  Sender: FDA-Public Use
  Company Number: FR-JNJFOC-20130211989

PATIENT
  Age: 79 Year
  Sex: Male

DRUGS (8)
  1. XARELTO [Suspect]
     Indication: PRODUCT USED FOR UNKNOWN INDICATION
     Route: 048
     Dates: start: 20121211, end: 20130103
  2. POTASSIUM CHLORIDE [Suspect]
     Indication: PRODUCT USED FOR UNKNOWN INDICATION
     Route: 065
  3. HYDROXYZINE [Concomitant]
     Route: 065
  4. INSULIN GLARGINE [Concomitant]
     Route: 065
  5. REPAGLINIDE [Concomitant]
     Route: 065
  6. TRINITRINE [Concomitant]
     Route: 065
  7. FUROSEMIDE [Concomitant]
     Route: 065
  8. BISOPROLOL [Concomitant]
     Route: 065

REACTIONS (2)
  - Vascular purpura [Recovering/Resolving]
  - Rash [Recovered/Resolved]
